FAERS Safety Report 6396522-7 (Version None)
Quarter: 2009Q4

REPORT INFORMATION
  Report Type: 
  Country: None (occurrence: None)
  Receive Date: 20091012
  Receipt Date: 20091001
  Transmission Date: 20100525
  Serious: Yes (Hospitalization)
  Sender: FDA-Public Use
  Company Number: US-ASTRAZENECA-2009SE13253

PATIENT
  Age: 79 Year
  Sex: Female

DRUGS (2)
  1. PRILOSEC OTC [Suspect]
     Route: 048
  2. ENALAPRIL MALEATE [Suspect]

REACTIONS (5)
  - DRUG HYPERSENSITIVITY [None]
  - LIP SWELLING [None]
  - PRURITUS GENERALISED [None]
  - RASH GENERALISED [None]
  - SWELLING FACE [None]
